FAERS Safety Report 10272534 (Version 1)
Quarter: 2014Q3

REPORT INFORMATION
  Report Type: Spontaneous
  Country: CA (occurrence: CA)
  Receive Date: 20140702
  Receipt Date: 20140702
  Transmission Date: 20150326
  Serious: Yes (Other)
  Sender: FDA-Public Use
  Company Number: CA-TEVA-491479USA

PATIENT
  Sex: Male

DRUGS (2)
  1. RITUXAN [Suspect]
     Active Substance: RITUXIMAB
     Indication: B-CELL LYMPHOMA
     Dosage: DAILY DOSE AND FREQUENCY NOT REPORTED
     Route: 042
  2. TREANDA [Suspect]
     Active Substance: BENDAMUSTINE HYDROCHLORIDE
     Indication: B-CELL LYMPHOMA
     Dosage: DAILY DOSE AND FREQUENCY NOT REPORTED
     Route: 042

REACTIONS (2)
  - Acute lymphocytic leukaemia [Unknown]
  - Off label use [Unknown]
